FAERS Safety Report 5155499-2 (Version None)
Quarter: 2006Q4

REPORT INFORMATION
  Report Type: 
  Country: None (occurrence: None)
  Receive Date: 20061114
  Receipt Date: 20061024
  Transmission Date: 20070319
  Serious: Yes (Death)
  Sender: FDA-Public Use
  Company Number: DSA_28912_2006

PATIENT
  Age: 42 Year
  Sex: Female

DRUGS (2)
  1. DILTIAZEM [Suspect]
     Indication: SUPRAVENTRICULAR TACHYCARDIA
     Dosage: 100 ML ONCE PA
  2. ADENOSINE [Concomitant]

REACTIONS (4)
  - CARDIAC ARREST [None]
  - CIRCULATORY COLLAPSE [None]
  - INCORRECT DRUG ADMINISTRATION RATE [None]
  - WRONG DRUG ADMINISTERED [None]
